FAERS Safety Report 4624161-4 (Version None)
Quarter: 2005Q1

REPORT INFORMATION
  Report Type: 
  Country: None (occurrence: None)
  Receive Date: 20050331
  Receipt Date: 20050105
  Transmission Date: 20050727
  Serious: Yes (Hospitalization)
  Sender: FDA-Public Use
  Company Number: FR-GLAXOSMITHKLINE-B0363863A

PATIENT
  Age: 67 Year
  Sex: Male

DRUGS (5)
  1. DEROXAT [Suspect]
     Dosage: 20MG PER DAY
     Route: 048
     Dates: start: 20020101, end: 20041210
  2. TAHOR [Suspect]
     Dosage: 1UNIT PER DAY
     Route: 048
     Dates: start: 20020101, end: 20041210
  3. ATENOLOL [Concomitant]
     Dosage: 150MG PER DAY
     Route: 048
     Dates: start: 20020101
  4. KARDEGIC [Concomitant]
     Dosage: 75MG PER DAY
     Route: 048
     Dates: end: 20041210
  5. PLASTER [Concomitant]
     Route: 061
     Dates: start: 20040501

REACTIONS (3)
  - HEPATOMEGALY [None]
  - RASH MACULO-PAPULAR [None]
  - TOXIC SKIN ERUPTION [None]
